FAERS Safety Report 6890245-3 (Version None)
Quarter: 2010Q3

REPORT INFORMATION
  Report Type: 
  Country: None (occurrence: None)
  Receive Date: 20100730
  Receipt Date: 20080917
  Transmission Date: 20110219
  Serious: No
  Sender: FDA-Public Use
  Company Number: US-PFIZER INC-2008067341

PATIENT
  Sex: Female

DRUGS (3)
  1. LIPITOR [Suspect]
     Indication: LOW DENSITY LIPOPROTEIN INCREASED
     Route: 048
     Dates: start: 20080801, end: 20080801
  2. LIPITOR [Suspect]
     Indication: HYPERCHOLESTEROLAEMIA
  3. SYNTHROID [Concomitant]
     Route: 048

REACTIONS (7)
  - ARTHRALGIA [None]
  - BACK PAIN [None]
  - DYSPNOEA [None]
  - HEADACHE [None]
  - INSOMNIA [None]
  - NAUSEA [None]
  - PAIN IN EXTREMITY [None]
